FAERS Safety Report 18761350 (Version 1)
Quarter: 2021Q1

REPORT INFORMATION
  Report Type: Spontaneous
  Country: GB (occurrence: GB)
  Receive Date: 20210120
  Receipt Date: 20210120
  Transmission Date: 20210419
  Serious: Yes (Other)
  Sender: FDA-Public Use
  Company Number: GB-TEVA-2021-GB-1868576

PATIENT
  Age: 83 Year
  Sex: Female
  Weight: 73 kg

DRUGS (7)
  1. NITROFURANTOIN. [Suspect]
     Active Substance: NITROFURANTOIN
     Indication: INFECTION
     Dosage: 400 MILLIGRAM DAILY; TAKE ONE TWICE DAILY FOR 7 DAYS, TO TREAT INFECTION
     Route: 065
     Dates: start: 20201126
  2. CLENIL MODULITE [Concomitant]
     Active Substance: BECLOMETHASONE DIPROPIONATE
     Dosage: INHALE 1 ? 2 DOSE TWICE A DAY
     Route: 055
     Dates: start: 20200403
  3. SALAMOL [Concomitant]
     Active Substance: ALBUTEROL
     Dosage: INHALE 2 DOSES AS NEEDED
     Route: 055
     Dates: start: 20191204
  4. OMEPRAZOLE. [Concomitant]
     Active Substance: OMEPRAZOLE
     Dosage: 2 DOSAGE FORMS DAILY; ONE TO BE TAKEN TWICE A DAY
     Dates: start: 20191204
  5. CINNARIZINE [Concomitant]
     Active Substance: CINNARIZINE
     Indication: VERTIGO
     Dosage: 1?2 THREE TIMES A DAY IF NEEDED FOR VERTIGO
     Dates: start: 20201027, end: 20201110
  6. DOXAZOSIN [Concomitant]
     Active Substance: DOXAZOSIN MESYLATE
     Dosage: 1 DOSAGE FORMS DAILY; TAKE ONE DAILY
     Dates: start: 20191204
  7. ADCAL [Concomitant]
     Dosage: 2 DOSAGE FORMS DAILY; ONE TO BE TAKEN TWICE A DAY
     Dates: start: 20191204

REACTIONS (1)
  - Constipation [Recovered/Resolved]

NARRATIVE: CASE EVENT DATE: 20201215
